FAERS Safety Report 4816674-7 (Version None)
Quarter: 2005Q4

REPORT INFORMATION
  Report Type: 
  Country: None (occurrence: None)
  Receive Date: 20051101
  Receipt Date: 20051021
  Transmission Date: 20060501
  Serious: Yes (Hospitalization)
  Sender: FDA-Public Use
  Company Number: FR-AMGEN-UK155189

PATIENT
  Age: 25 Year
  Sex: Male

DRUGS (1)
  1. MIMPARA [Suspect]
     Indication: HYPERPARATHYROIDISM SECONDARY
     Route: 048

REACTIONS (3)
  - DRUG INEFFECTIVE [None]
  - HYPERCALCAEMIA [None]
  - HYPERCALCIURIA [None]
